FAERS Safety Report 19927193 (Version 10)
Quarter: 2022Q2

REPORT INFORMATION
  Report Type: Spontaneous
  Country: US (occurrence: US)
  Receive Date: 20211006
  Receipt Date: 20220616
  Transmission Date: 20220721
  Serious: No
  Sender: FDA-Public Use
  Company Number: US-GLAXOSMITHKLINE-US2021AMR206203

PATIENT
  Sex: Female

DRUGS (3)
  1. ZEJULA [Suspect]
     Active Substance: NIRAPARIB
     Indication: Ovarian cancer
     Dosage: 200 MG, QD
     Route: 048
  2. ZEJULA [Suspect]
     Active Substance: NIRAPARIB
     Dosage: 200 MG, BID
     Route: 048
  3. ZEJULA [Suspect]
     Active Substance: NIRAPARIB
     Dosage: 200 MG, QD
     Route: 048

REACTIONS (10)
  - Muscle spasms [Recovering/Resolving]
  - Constipation [Recovering/Resolving]
  - Abdominal distension [Unknown]
  - White blood cell count decreased [Unknown]
  - Haemoglobin increased [Unknown]
  - Pain [Unknown]
  - Flatulence [Recovering/Resolving]
  - Weight loss poor [Unknown]
  - Off label use [Unknown]
  - Drug ineffective [Unknown]
